FAERS Safety Report 18672825 (Version 1)
Quarter: 2020Q4

REPORT INFORMATION
  Report Type: Spontaneous
  Country: DE (occurrence: DE)
  Receive Date: 20201228
  Receipt Date: 20201228
  Transmission Date: 20210114
  Serious: Yes (Other)
  Sender: FDA-Public Use
  Company Number: DE-MYLANLABS-2020M1103761

PATIENT
  Age: 68 Year
  Sex: Female

DRUGS (5)
  1. CLONID OPHTAL [Suspect]
     Active Substance: CLONIDINE HYDROCHLORIDE
     Indication: GLAUCOMA
     Dosage: START DATE: SINCE 8 YEARS
     Route: 047
     Dates: start: 2012, end: 202010
  2. CLONID OPHTAL [Suspect]
     Active Substance: CLONIDINE HYDROCHLORIDE
     Dosage: DOSE REDUCED 4 WEEKS PRIOR AND STOPPED 14 DAYS PRIOR TO THIS F/U REPORT.
     Route: 047
     Dates: start: 202010, end: 20201111
  3. TELMISARTAN. [Suspect]
     Active Substance: TELMISARTAN
     Indication: BLOOD PRESSURE MEASUREMENT
     Dosage: 40 MG IN THE EVENING
     Route: 065
     Dates: end: 2020
  4. TIM-OPHTAL [Suspect]
     Active Substance: TIMOLOL MALEATE
     Indication: GLAUCOMA
     Dosage: START DATE: SINCE 8 YEARS
     Route: 047
     Dates: start: 2012
  5. TAFLOTAN SINE [Suspect]
     Active Substance: TAFLUPROST
     Indication: GLAUCOMA
     Dosage: START DATE: SINCE 8 YEARS
     Route: 065
     Dates: start: 2012

REACTIONS (7)
  - Rash [Recovering/Resolving]
  - Tinnitus [Not Recovered/Not Resolved]
  - Blood pressure increased [Recovered/Resolved]
  - Sudden hearing loss [Recovering/Resolving]
  - Nephritis [Unknown]
  - Dry mouth [Unknown]
  - Paraesthesia [Not Recovered/Not Resolved]

NARRATIVE: CASE EVENT DATE: 2020
